FAERS Safety Report 19869489 (Version 1)
Quarter: 2021Q3

REPORT INFORMATION
  Report Type: Spontaneous
  Country: JP (occurrence: JP)
  Receive Date: 20210922
  Receipt Date: 20210922
  Transmission Date: 20211014
  Serious: Yes (Hospitalization, Other)
  Sender: FDA-Public Use
  Company Number: JP-LOTUS-2021-LOTUS-001044

PATIENT
  Age: 69 Year
  Sex: Male

DRUGS (1)
  1. METHOTREXATE. [Suspect]
     Active Substance: METHOTREXATE
     Indication: RHEUMATOID ARTHRITIS

REACTIONS (5)
  - Lymphadenopathy [Recovered/Resolved]
  - Follicular lymphoma [Unknown]
  - Dysphonia [Unknown]
  - Pyrexia [Recovered/Resolved]
  - Lymphoproliferative disorder [Unknown]
